FAERS Safety Report 14179993 (Version 1)
Quarter: 2017Q4

REPORT INFORMATION
  Report Type: Spontaneous
  Country: CA (occurrence: CA)
  Receive Date: 20171110
  Receipt Date: 20171110
  Transmission Date: 20180321
  Serious: Yes (Other)
  Sender: FDA-Public Use
  Company Number: CA-PFIZER INC-2017468928

PATIENT
  Sex: Female

DRUGS (2)
  1. LYRICA [Suspect]
     Active Substance: PREGABALIN
     Indication: DIABETIC NEUROPATHY
  2. CORTISOL [Interacting]
     Active Substance: HYDROCORTISONE

REACTIONS (3)
  - Adrenocortical insufficiency acute [Unknown]
  - Malabsorption [Unknown]
  - Drug interaction [Unknown]
